FAERS Safety Report 5736379-8 (Version None)
Quarter: 2008Q2

REPORT INFORMATION
  Report Type: 
  Country: None (occurrence: None)
  Receive Date: 20080509
  Receipt Date: 20080509
  Transmission Date: 20081010
  Serious: Yes (Life-Threatening, Other)
  Sender: FDA-Public Use
  Company Number: None

PATIENT
  Age: 56 Year
  Sex: Male
  Weight: 92.9874 kg

DRUGS (1)
  1. DIGITEK  .5 MG  NOT AVAILABLE [Suspect]
     Indication: CARDIAC DISORDER
     Dosage: .5 MG DAILY PO
     Route: 048
     Dates: start: 20010201, end: 20080506

REACTIONS (6)
  - DIZZINESS [None]
  - DRUG LEVEL INCREASED [None]
  - HYPOTENSION [None]
  - NAUSEA [None]
  - RENAL FAILURE [None]
  - VOMITING [None]
